FAERS Safety Report 11202302 (Version 1)
Quarter: 2015Q2

REPORT INFORMATION
  Report Type: Spontaneous
  Country: FR (occurrence: FR)
  Receive Date: 20150619
  Receipt Date: 20150619
  Transmission Date: 20150821
  Serious: Yes (Death, Other)
  Sender: FDA-Public Use
  Company Number: FR-009507513-1506FRA009679

PATIENT
  Age: 68 Year
  Sex: Male
  Weight: 82.4 kg

DRUGS (16)
  1. XATRAL [Suspect]
     Active Substance: ALFUZOSIN
     Dosage: 5 MG, QD
     Route: 048
     Dates: start: 20150503, end: 2015
  2. RIFAMPIN. [Suspect]
     Active Substance: RIFAMPIN
     Dosage: UNK
     Dates: start: 20150507, end: 2015
  3. INEXIUM (ESOMEPRAZOLE SODIUM) [Concomitant]
     Active Substance: ESOMEPRAZOLE
     Dosage: 40 MG, QD
     Route: 048
  4. DEXTROSE. [Concomitant]
     Active Substance: DEXTROSE
     Dosage: 500 ML, Q24H
     Route: 042
  5. REVLIMID [Concomitant]
     Active Substance: LENALIDOMIDE
     Dosage: 5 MG, QD
     Route: 048
  6. PHOSPHONEUROS [Concomitant]
     Active Substance: CALCIUM PHOSPHATE, DIBASIC, ANHYDROUS\MAGNESIUM GLYCEROPHOSPHATE\PHOSPHORIC ACID\SODIUM PHOSPHATE, DIBASIC
     Dosage: 50 DROPS, BID
     Route: 048
  7. SMOFKABIVEN [Concomitant]
     Active Substance: UNSPECIFIED INGREDIENT
     Dosage: 500 ML, Q24H
     Route: 042
  8. PHOCYTAN [Concomitant]
     Active Substance: .ALPHA.-GLUCOSE-1-PHOSPHATE
     Dosage: 2 AMPOULES
     Route: 042
  9. NEODEX (DEXAMETHASONE) [Concomitant]
     Active Substance: DEXAMETHASONE
     Dosage: 1 DF, QW, ON WEDNESDAY
     Route: 048
  10. AMOXICILLIN. [Suspect]
     Active Substance: AMOXICILLIN
     Dosage: 500 MG, BID
     Route: 048
     Dates: start: 20150420, end: 2015
  11. ACETYLCYSTEINE. [Concomitant]
     Active Substance: ACETYLCYSTEINE
     Dosage: 8 MG, Q24H
     Route: 042
  12. TIENAM [Concomitant]
     Active Substance: CILASTATIN SODIUM\IMIPENEM
     Dosage: 500 MG, BID
     Route: 042
     Dates: start: 20150513
  13. NORSET [Suspect]
     Active Substance: MIRTAZAPINE
     Dosage: 15 MG DAILY
     Route: 048
     Dates: start: 20150503, end: 2015
  14. ACETAMINOPHEN. [Suspect]
     Active Substance: ACETAMINOPHEN
     Dosage: UNK
     Dates: end: 2015
  15. ZOVIRAX [Concomitant]
     Active Substance: ACYCLOVIR
     Dosage: 200 MG, BID
     Route: 048
  16. LASILIX [Concomitant]
     Active Substance: FUROSEMIDE
     Dosage: 40 MG, BID
     Route: 048
     Dates: start: 20150504

REACTIONS (2)
  - Acute kidney injury [Fatal]
  - Acute hepatic failure [Fatal]

NARRATIVE: CASE EVENT DATE: 20150510
